FAERS Safety Report 12686916 (Version 1)
Quarter: 2016Q3

REPORT INFORMATION
  Report Type: Spontaneous
  Country: US (occurrence: US)
  Receive Date: 20160825
  Receipt Date: 20160825
  Transmission Date: 20161109
  Serious: No
  Sender: FDA-Public Use
  Company Number: US-JAZZ-2016-US-007153

PATIENT
  Sex: Female

DRUGS (25)
  1. XYREM [Suspect]
     Active Substance: SODIUM OXYBATE
     Dosage: DOSE ADJUSTMENTS
     Route: 048
  2. IMITREX [Concomitant]
     Active Substance: SUMATRIPTAN SUCCINATE
  3. VITAMIN C [Concomitant]
     Active Substance: ASCORBIC ACID
  4. PERCODAN [Concomitant]
     Active Substance: ASPIRIN\OXYCODONE HYDROCHLORIDE
  5. SOMA [Concomitant]
     Active Substance: CARISOPRODOL
  6. ZINC [Concomitant]
     Active Substance: ZINC\ZINC CHLORIDE
  7. ORENCIA [Concomitant]
     Active Substance: ABATACEPT
  8. LISINOPRIL. [Concomitant]
     Active Substance: LISINOPRIL
  9. XARELTO [Concomitant]
     Active Substance: RIVAROXABAN
  10. XYREM [Suspect]
     Active Substance: SODIUM OXYBATE
     Dosage: 4.5 G, BID
     Route: 048
     Dates: start: 201509
  11. TOPAMAX [Concomitant]
     Active Substance: TOPIRAMATE
  12. ZOLPIDEM TARTRATE. [Concomitant]
     Active Substance: ZOLPIDEM TARTRATE
  13. OXYCODONE HYDROCHLORIDE. [Concomitant]
     Active Substance: OXYCODONE HYDROCHLORIDE
  14. BUTALBITAL [Concomitant]
     Active Substance: BUTALBITAL
  15. XYREM [Suspect]
     Active Substance: SODIUM OXYBATE
     Indication: HYPERSOMNIA
     Dosage: 3 G, BID
     Route: 048
     Dates: start: 201001, end: 201002
  16. RESTORIL [Concomitant]
     Active Substance: TEMAZEPAM
  17. HUMIRA [Concomitant]
     Active Substance: ADALIMUMAB
  18. CALCIUM [Concomitant]
     Active Substance: CALCIUM
  19. COMPAZINE [Concomitant]
     Active Substance: PROCHLORPERAZINE MALEATE
  20. FOSAMAX [Concomitant]
     Active Substance: ALENDRONATE SODIUM
  21. METHADONE HCL [Concomitant]
     Active Substance: METHADONE HYDROCHLORIDE
  22. XANAX [Concomitant]
     Active Substance: ALPRAZOLAM
  23. FISH OIL [Concomitant]
     Active Substance: FISH OIL
  24. FOLIC ACID. [Concomitant]
     Active Substance: FOLIC ACID
  25. LYRICA [Concomitant]
     Active Substance: PREGABALIN

REACTIONS (1)
  - Bone disorder [Not Recovered/Not Resolved]
